FAERS Safety Report 8465412-8 (Version None)
Quarter: 2012Q2

REPORT INFORMATION
  Report Type: 
  Country: None (occurrence: None)
  Receive Date: 20120626
  Receipt Date: 20120618
  Transmission Date: 20120825
  Serious: Yes (Hospitalization, Other)
  Sender: FDA-Public Use
  Company Number: US-BAYER-2012-062055

PATIENT
  Age: 30 Year
  Sex: Female
  Weight: 84.082 kg

DRUGS (8)
  1. IBUPROFEN [Concomitant]
     Dosage: UNK
  2. LEVAQUIN [Concomitant]
     Indication: UPPER RESPIRATORY TRACT INFECTION
     Dosage: UNK
  3. PROTONIX [Concomitant]
  4. ACETAMINOPHEN [Concomitant]
  5. SUDAFED 12 HOUR [Concomitant]
     Dosage: UNK
  6. COLACE [Concomitant]
  7. YAZ [Suspect]
  8. MILK OF MAGNESIA TAB [Concomitant]

REACTIONS (3)
  - PULMONARY INFARCTION [None]
  - DEEP VEIN THROMBOSIS [None]
  - PULMONARY EMBOLISM [None]
